FAERS Safety Report 9359419 (Version 1)
Quarter: 2013Q2

REPORT INFORMATION
  Report Type: Spontaneous
  Country: BR (occurrence: BR)
  Receive Date: 20130620
  Receipt Date: 20130620
  Transmission Date: 20140414
  Serious: Yes (Other)
  Sender: FDA-Public Use
  Company Number: BR-PFIZER INC-2013184561

PATIENT
  Age: 58 Year
  Sex: Female

DRUGS (7)
  1. LYRICA [Suspect]
     Indication: FIBROMYALGIA
     Dosage: 75 MG (ONE CAPSULE), 2X/DAY
     Route: 048
     Dates: start: 20130617, end: 20130619
  2. TOPIRAMATE [Suspect]
     Indication: MIGRAINE
     Dosage: 100MG AT NIGHT AND 50MG IN THE MORNING
     Dates: start: 2006
  3. TOPIRAMATE [Suspect]
     Indication: DIZZINESS
  4. TOPIRAMATE [Suspect]
     Indication: NAUSEA
  5. BUPROPION HYDROCHLORIDE [Concomitant]
     Indication: ANTIDEPRESSANT THERAPY
     Dosage: 150MG
     Dates: start: 2008
  6. RIVOTRIL [Concomitant]
     Indication: ANTIDEPRESSANT THERAPY
     Dosage: 2MG
     Dates: start: 1999
  7. VENLAFAXINE [Concomitant]
     Indication: ANTIDEPRESSANT THERAPY
     Dosage: 50MG AT NIGHT AND 75MG IN THE MORNING

REACTIONS (6)
  - Fall [Recovered/Resolved]
  - Bedridden [Recovered/Resolved]
  - Fatigue [Recovered/Resolved]
  - Visual impairment [Recovered/Resolved]
  - Drug interaction [Unknown]
  - Drug ineffective [Unknown]
